FAERS Safety Report 8598305-6 (Version None)
Quarter: 2012Q3

REPORT INFORMATION
  Report Type: 
  Country: None (occurrence: None)
  Receive Date: 20120816
  Receipt Date: 20120813
  Transmission Date: 20120928
  Serious: Yes (Hospitalization)
  Sender: FDA-Public Use
  Company Number: CA-ABBOTT-12P-028-0968335-00

PATIENT
  Sex: Male

DRUGS (1)
  1. HUMIRA [Suspect]
     Indication: CROHN'S DISEASE
     Dosage: UNKNOWN
     Route: 058
     Dates: start: 20110606, end: 20120101

REACTIONS (3)
  - CHILLS [None]
  - PYREXIA [None]
  - HEADACHE [None]
